FAERS Safety Report 15663864 (Version 1)
Quarter: 2018Q4

REPORT INFORMATION
  Report Type: Spontaneous
  Country: CO (occurrence: CO)
  Receive Date: 20181128
  Receipt Date: 20181128
  Transmission Date: 20190205
  Serious: Yes (Other)
  Sender: FDA-Public Use
  Company Number: CO-ROCHE-2220846

PATIENT

DRUGS (1)
  1. CELLCEPT [Suspect]
     Active Substance: MYCOPHENOLATE MOFETIL\MYCOPHENOLATE MOFETIL HYDROCHLORIDE
     Indication: INTERSTITIAL LUNG DISEASE
     Route: 048

REACTIONS (7)
  - Gingival disorder [Unknown]
  - Feeling of despair [Unknown]
  - Eye discharge [Unknown]
  - Tremor [Unknown]
  - Tachycardia [Unknown]
  - Intentional product use issue [Unknown]
  - Off label use [Unknown]
